FAERS Safety Report 6801205-2 (Version None)
Quarter: 2010Q2

REPORT INFORMATION
  Report Type: 
  Country: None (occurrence: None)
  Receive Date: 20100629
  Receipt Date: 20100617
  Transmission Date: 20101027
  Serious: Yes (Other)
  Sender: FDA-Public Use
  Company Number: US-WYE-H15724210

PATIENT
  Sex: Female
  Weight: 79.45 kg

DRUGS (2)
  1. EFFEXOR XR [Suspect]
     Indication: DEPRESSION
     Dates: start: 20050101
  2. XANAX [Concomitant]

REACTIONS (4)
  - BRAIN NEOPLASM [None]
  - CONVULSION [None]
  - CYSTITIS INTERSTITIAL [None]
  - LUNG NEOPLASM [None]
